FAERS Safety Report 7711002-1 (Version None)
Quarter: 2011Q3

REPORT INFORMATION
  Report Type: 
  Country: None (occurrence: None)
  Receive Date: 20110825
  Receipt Date: 20110823
  Transmission Date: 20111222
  Serious: Yes (Other)
  Sender: FDA-Public Use
  Company Number: FR-GENENTECH-323398

PATIENT
  Sex: Male

DRUGS (4)
  1. MABTHERA [Suspect]
     Dosage: UNK
     Route: 065
     Dates: start: 20101005
  2. CYCLOPHOSPHAMIDE [Suspect]
     Dosage: UNK
     Route: 065
     Dates: start: 20101005
  3. MABTHERA [Suspect]
     Indication: IDIOPATHIC THROMBOCYTOPENIC PURPURA
     Dosage: UNK
     Route: 065
     Dates: start: 20100830
  4. CYCLOPHOSPHAMIDE [Suspect]
     Indication: IDIOPATHIC THROMBOCYTOPENIC PURPURA
     Dosage: UNK
     Route: 065
     Dates: start: 20100830

REACTIONS (1)
  - LUNG DISORDER [None]
